FAERS Safety Report 8093893-0 (Version None)
Quarter: 2012Q1

REPORT INFORMATION
  Report Type: 
  Country: None (occurrence: None)
  Receive Date: 20120131
  Receipt Date: 20120119
  Transmission Date: 20120608
  Serious: Yes (Hospitalization)
  Sender: FDA-Public Use
  Company Number: PHEH2012US001806

PATIENT
  Age: 10 Year
  Sex: Female

DRUGS (2)
  1. PULMOZYME [Concomitant]
  2. TOBI [Suspect]
     Dosage: 300 MG, BID
     Dates: start: 20110117

REACTIONS (1)
  - PSEUDOMONAS INFECTION [None]
